FAERS Safety Report 4917215-6 (Version None)
Quarter: 2006Q1

REPORT INFORMATION
  Report Type: 
  Country: None (occurrence: None)
  Receive Date: 20060214
  Receipt Date: 20060201
  Transmission Date: 20060701
  Serious: Yes (Death, Other)
  Sender: FDA-Public Use
  Company Number: 24355

PATIENT
  Age: 62 Year
  Sex: Female

DRUGS (1)
  1. DACARBAZINE [Suspect]
     Indication: METASTATIC MALIGNANT MELANOMA
     Dosage: IV
     Route: 042
     Dates: end: 20050920

REACTIONS (2)
  - MALIGNANT NEOPLASM PROGRESSION [None]
  - METASTATIC MALIGNANT MELANOMA [None]
